FAERS Safety Report 5190497-4 (Version None)
Quarter: 2006Q4

REPORT INFORMATION
  Report Type: 
  Country: None (occurrence: None)
  Receive Date: 20061222
  Receipt Date: 20061114
  Transmission Date: 20070319
  Serious: Yes (Disabling)
  Sender: FDA-Public Use
  Company Number: 2006JP004646

PATIENT
  Age: 9 Year
  Sex: Female
  Weight: 33 kg

DRUGS (6)
  1. CEFAMEZIN [Suspect]
     Indication: PNEUMONIA
     Dosage: .5G PER DAY
     Route: 042
     Dates: start: 20061006, end: 20061006
  2. ELASPOL [Suspect]
     Indication: ACUTE RESPIRATORY DISTRESS SYNDROME
     Dates: start: 20061006, end: 20061015
  3. GASTER [Suspect]
     Indication: DRUG USE FOR UNKNOWN INDICATION
     Route: 042
     Dates: start: 20061006, end: 20061015
  4. UNASYN [Suspect]
     Indication: PNEUMONIA
     Dosage: .5G THREE TIMES PER DAY
     Route: 042
     Dates: start: 20061006, end: 20061006
  5. SULPERAZON [Suspect]
     Indication: PNEUMONIA
     Dates: start: 20061008, end: 20061008
  6. CONCURRENT MEDICATIONS [Concomitant]

REACTIONS (4)
  - ACUTE RESPIRATORY DISTRESS SYNDROME [None]
  - C-REACTIVE PROTEIN INCREASED [None]
  - OXYGEN SATURATION DECREASED [None]
  - PYREXIA [None]
